FAERS Safety Report 10068027 (Version 1)
Quarter: 2014Q2

REPORT INFORMATION
  Report Type: Spontaneous
  Country: BR (occurrence: BR)
  Receive Date: 20140409
  Receipt Date: 20140409
  Transmission Date: 20141212
  Serious: Yes (Other)
  Sender: FDA-Public Use
  Company Number: BR-ASTRAZENECA-2014SE23053

PATIENT
  Age: 76 Year
  Sex: Male
  Weight: 110 kg

DRUGS (4)
  1. SELOZOK [Suspect]
     Indication: ATRIAL FIBRILLATION
     Route: 048
     Dates: start: 2013, end: 2014
  2. SELOZOK [Suspect]
     Indication: ATRIAL FIBRILLATION
     Dosage: 50MG OD/NIGHT AND 25MG OD/MORNING
     Route: 048
     Dates: start: 2014, end: 2014
  3. SELOZOK [Suspect]
     Indication: ATRIAL FIBRILLATION
     Route: 048
     Dates: start: 2014, end: 2014
  4. XARELTO [Concomitant]
     Route: 048

REACTIONS (7)
  - Blood pressure increased [Recovered/Resolved]
  - Heart rate increased [Not Recovered/Not Resolved]
  - Asthenia [Recovered/Resolved]
  - Depressed mood [Recovered/Resolved]
  - Fatigue [Recovered/Resolved]
  - Off label use [Recovered/Resolved]
  - Drug dose omission [Recovered/Resolved]
